FAERS Safety Report 8797662 (Version 1)
Quarter: 2012Q4

REPORT INFORMATION
  Report Type: Spontaneous
  Country: US (occurrence: None)
  Receive Date: 20120914
  Receipt Date: 20120914
  Transmission Date: 20130627
  Serious: Yes (Hospitalization)
  Sender: FDA-Public Use
  Company Number: None

PATIENT
  Age: 53 Year
  Sex: Male

DRUGS (3)
  1. PEGASYS [Suspect]
     Route: 058
     Dates: start: 20120615, end: 20120908
  2. RIBAPAK [Suspect]
     Route: 048
     Dates: start: 20120615, end: 20120908
  3. INCIVEK [Concomitant]

REACTIONS (2)
  - Red blood cell count decreased [None]
  - White blood cell count increased [None]
